FAERS Safety Report 11791748 (Version 1)
Quarter: 2015Q4

REPORT INFORMATION
  Report Type: Spontaneous
  Country: US (occurrence: US)
  Receive Date: 20151201
  Receipt Date: 20151201
  Transmission Date: 20160305
  Serious: Yes (Other)
  Sender: FDA-Public Use
  Company Number: PHEH2015US024327

PATIENT
  Sex: Female
  Weight: 48.53 kg

DRUGS (7)
  1. NEXAVAR [Suspect]
     Active Substance: SORAFENIB
     Indication: NEOPLASM
     Dosage: UNK
     Route: 065
     Dates: start: 20150701
  2. TRAMADOL. [Concomitant]
     Active Substance: TRAMADOL
     Indication: PRODUCT USED FOR UNKNOWN INDICATION
     Route: 065
  3. AMLODIPINE [Concomitant]
     Active Substance: AMLODIPINE BESYLATE
     Indication: PRODUCT USED FOR UNKNOWN INDICATION
     Route: 065
  4. HYDRALAZINE [Concomitant]
     Active Substance: HYDRALAZINE HYDROCHLORIDE
     Indication: PRODUCT USED FOR UNKNOWN INDICATION
     Dosage: UNK UNK, PRN
     Route: 065
  5. PROZAC [Concomitant]
     Active Substance: FLUOXETINE HYDROCHLORIDE
     Indication: PRODUCT USED FOR UNKNOWN INDICATION
     Route: 065
  6. SUTENT [Suspect]
     Active Substance: SUNITINIB MALATE
     Indication: NEOPLASM
     Dosage: 37.5 MG, UNK (28 DAYS ON/14 DAYS OFF)
     Route: 065
     Dates: start: 20150814
  7. AFINITOR [Suspect]
     Active Substance: EVEROLIMUS
     Indication: NEOPLASM
     Dosage: UNK
     Route: 065
     Dates: start: 20150331

REACTIONS (23)
  - Oral disorder [Unknown]
  - Weight decreased [Unknown]
  - Decreased appetite [Unknown]
  - Drug ineffective [Unknown]
  - Blister [Unknown]
  - Paraesthesia [Unknown]
  - Dyspnoea [Unknown]
  - Glossodynia [Unknown]
  - Hyperkeratosis [Unknown]
  - Dysgeusia [Unknown]
  - Osteonecrosis of jaw [Unknown]
  - Noninfective gingivitis [Unknown]
  - Glossitis [Unknown]
  - Gingival pain [Unknown]
  - Fatigue [Unknown]
  - Oral pain [Unknown]
  - Gingival bleeding [Unknown]
  - Pain in extremity [Unknown]
  - Stomatitis [Unknown]
  - Palmar-plantar erythrodysaesthesia syndrome [Unknown]
  - Hypoaesthesia [Unknown]
  - Constipation [Unknown]
  - Cough [Unknown]
